FAERS Safety Report 17651445 (Version 1)
Quarter: 2020Q2

REPORT INFORMATION
  Report Type: Report from Study
  Country: CA (occurrence: CA)
  Receive Date: 20200409
  Receipt Date: 20200409
  Transmission Date: 20200713
  Serious: Yes (Other)
  Sender: FDA-Public Use
  Company Number: CA-ASTRAZENECA-2020SE30490

PATIENT
  Sex: Female

DRUGS (2)
  1. LYNPARZA [Suspect]
     Active Substance: OLAPARIB
     Route: 048
     Dates: start: 2019
  2. LYNPARZA [Suspect]
     Active Substance: OLAPARIB
     Dosage: HALF DOSE
     Route: 048

REACTIONS (6)
  - Anaemia [Unknown]
  - Nausea [Unknown]
  - Vomiting [Unknown]
  - Blood calcium increased [Unknown]
  - Renal impairment [Unknown]
  - Blood creatinine abnormal [Unknown]
